FAERS Safety Report 6430412-6 (Version None)
Quarter: 2009Q4

REPORT INFORMATION
  Report Type: 
  Country: None (occurrence: None)
  Receive Date: 20091106
  Receipt Date: 20091027
  Transmission Date: 20100525
  Serious: Yes (Hospitalization, Other)
  Sender: FDA-Public Use
  Company Number: BR-EISAI INC.-E3810-03273-SPO-BR

PATIENT
  Age: 74 Year
  Sex: Male

DRUGS (7)
  1. PARIET (RABEPRAZOLE) [Suspect]
     Route: 048
     Dates: start: 20090901
  2. MOTILIUM [Suspect]
     Indication: DYSPEPSIA
     Dosage: UNKNOWN
     Route: 048
     Dates: start: 20090801
  3. MYLICON [Suspect]
     Dosage: UNKNOWN
     Route: 065
     Dates: start: 20090801
  4. ALOIS [Concomitant]
     Dosage: UNKNOWN
     Route: 048
  5. ALOIS [Concomitant]
     Dosage: UNKNOWN
     Route: 048
  6. RISPERIDONE [Concomitant]
     Dosage: UNKNOWN
     Dates: start: 20091001, end: 20091001
  7. ALL - 26 (POLYVITAMIN) [Concomitant]
     Dosage: UNKNOWN

REACTIONS (3)
  - ABDOMINAL PAIN [None]
  - AGITATION [None]
  - PNEUMONIA [None]
